FAERS Safety Report 16273348 (Version 2)
Quarter: 2019Q2

REPORT INFORMATION
  Report Type: Report from Study
  Country: None (occurrence: HU)
  Receive Date: 20190506
  Receipt Date: 20190520
  Transmission Date: 20190711
  Serious: Yes (Hospitalization, Other)
  Sender: FDA-Public Use
  Company Number: HU-ABBVIE-19S-076-2768400-00

PATIENT
  Age: 70 Year
  Sex: Male

DRUGS (5)
  1. DUODOPA [Suspect]
     Active Substance: CARBIDOPA\LEVODOPA
     Indication: PARKINSON^S DISEASE
     Dosage: MD 10.4 ML; CD 3.2 ML/H; ED2.0 ML
     Route: 050
     Dates: start: 20161202
  2. SASTRAVI [Concomitant]
     Indication: PARKINSON^S DISEASE
     Dosage: 200MG /50MG /200MG?AT NIGHT AS REQUIRED
     Route: 048
  3. MIRVEDOL [Concomitant]
     Indication: COGNITIVE DISORDER
     Route: 048
     Dates: start: 20180606
  4. MIRVEDOL [Concomitant]
     Indication: BALANCE DISORDER
  5. CLEXANE [Concomitant]
     Active Substance: ENOXAPARIN SODIUM
     Indication: PROPHYLAXIS
     Dosage: 6000 UNIT (60MG) /0.6 ML?1 AMPULLE AT A TIME
     Route: 058
     Dates: start: 20190417

REACTIONS (6)
  - Delirium [Recovered/Resolved]
  - Altered state of consciousness [Recovered/Resolved]
  - Aggression [Recovered/Resolved]
  - Comminuted fracture [Not Recovered/Not Resolved]
  - Fall [Recovered/Resolved]
  - Unintentional medical device removal [Unknown]

NARRATIVE: CASE EVENT DATE: 20190416
